FAERS Safety Report 25849194 (Version 1)
Quarter: 2025Q3

REPORT INFORMATION
  Report Type: Report from Study
  Country: US (occurrence: US)
  Receive Date: 20250925
  Receipt Date: 20250925
  Transmission Date: 20251020
  Serious: Yes (Death)
  Sender: UCB
  Company Number: US-UCBSA-2025044042

PATIENT
  Age: 49 Year
  Sex: Male

DRUGS (1)
  1. BIMEKIZUMAB [Suspect]
     Active Substance: BIMEKIZUMAB
     Indication: Psoriasis
     Dosage: 320 MILLIGRAM, EV 8 WEEKS
     Route: 058
     Dates: start: 20240827, end: 20250709

REACTIONS (9)
  - Coronary artery disease [Fatal]
  - Mitral valve stenosis [Fatal]
  - Mitral valve incompetence [Fatal]
  - Aortic stenosis [Fatal]
  - Coronary artery bypass [Fatal]
  - Mitral valve replacement [Fatal]
  - Intra-aortic balloon placement [Fatal]
  - Post procedural complication [Fatal]
  - Metabolic acidosis [Fatal]

NARRATIVE: CASE EVENT DATE: 20250709
